FAERS Safety Report 5802914-4 (Version None)
Quarter: 2008Q2

REPORT INFORMATION
  Report Type: 
  Country: None (occurrence: None)
  Receive Date: 20080627
  Receipt Date: 20080125
  Transmission Date: 20081010
  Serious: Yes (Other)
  Sender: FDA-Public Use
  Company Number: PHEH2008US01251

PATIENT
  Age: 70 Year
  Sex: Female

DRUGS (7)
  1. RECLAST [Suspect]
     Indication: OSTEOPOROSIS POSTMENOPAUSAL
     Dosage: 5, ONCE/SINGLE, INFUSION
  2. VERAPAMIL [Concomitant]
  3. MAXZIDE [Concomitant]
  4. APAP (PARACETAMOL) [Concomitant]
  5. CLONIDINE [Concomitant]
  6. ATENOLOL [Concomitant]
  7. VYTORIN [Concomitant]

REACTIONS (5)
  - ARTHRALGIA [None]
  - EYE PAIN [None]
  - FLUID REPLACEMENT [None]
  - GLAUCOMA [None]
  - PYREXIA [None]
